FAERS Safety Report 7675841-8 (Version None)
Quarter: 2011Q3

REPORT INFORMATION
  Report Type: 
  Country: None (occurrence: None)
  Receive Date: 20110810
  Receipt Date: 20110728
  Transmission Date: 20111222
  Serious: Yes (Other)
  Sender: FDA-Public Use
  Company Number: JP-MYLANLABS-2011S1015914

PATIENT
  Age: 5 Year
  Sex: Female

DRUGS (2)
  1. CISPLATIN [Suspect]
     Indication: NONGERMINOMATOUS GERM CELL TUMOUR OF THE CNS
     Dosage: 20 MG/M2 FOR 5 CONSECUTIVE DAYS
     Route: 065
  2. ETOPOSIDE [Suspect]
     Indication: NONGERMINOMATOUS GERM CELL TUMOUR OF THE CNS
     Dosage: 60 MG/M2 FOR 5 CONSECUTIVE DAYS
     Route: 065

REACTIONS (2)
  - BONE MARROW FAILURE [None]
  - SUPERIOR SAGITTAL SINUS THROMBOSIS [None]
